FAERS Safety Report 23266997 (Version 1)
Quarter: 2023Q4

REPORT INFORMATION
  Report Type: Other
  Country: None (occurrence: CN)
  Receive Date: 20231206
  Receipt Date: 20231206
  Transmission Date: 20240110
  Serious: Yes (Life-Threatening)
  Sender: FDA-Public Use
  Company Number: CN-B.Braun Medical Inc.-2149042

PATIENT
  Age: 54 Year
  Sex: Female
  Weight: 64 kg

DRUGS (11)
  1. LIDOCAINE HYDROCHLORIDE [Suspect]
     Active Substance: DEXTROSE MONOHYDRATE\EPINEPHRINE\EPINEPHRINE BITARTRATE\LIDOCAINE\LIDOCAINE HYDROCHLORIDE\LIDOCAINE
     Indication: Local anaesthesia
  2. SODIUM CHLORIDE [Suspect]
     Active Substance: SODIUM CHLORIDE
  3. DEXMEDETOMIDINE [Suspect]
     Active Substance: DEXMEDETOMIDINE
  4. MIDAZOLAM [Suspect]
     Active Substance: MIDAZOLAM
  5. SUFENTANIL [Suspect]
     Active Substance: SUFENTANIL
  6. ROCURONIUM BROMIDE [Suspect]
     Active Substance: ROCURONIUM BROMIDE
  7. PROPOFOL [Suspect]
     Active Substance: PROPOFOL
  8. SEVOFLURANE [Suspect]
     Active Substance: SEVOFLURANE
  9. REMIFENTANIL [Suspect]
     Active Substance: REMIFENTANIL
  10. NEOSTIGMINE. [Suspect]
     Active Substance: NEOSTIGMINE METHYLSULFATE
  11. ATROPINE [Suspect]
     Active Substance: ATROPINE\ATROPINE SULFATE

REACTIONS (2)
  - Hypoventilation [None]
  - Obstructive airways disorder [None]
